FAERS Safety Report 8894716 (Version 1)
Quarter: 2012Q4

REPORT INFORMATION
  Report Type: 
  Country: US (occurrence: US)
  Receive Date: 20121108
  Receipt Date: 20121108
  Transmission Date: 20130627
  Serious: Yes (Other)
  Sender: FDA-Public Use
  Company Number: US-BRISTOL-MYERS SQUIBB COMPANY-17083320

PATIENT
  Age: 50 Year
  Sex: Female

DRUGS (2)
  1. ABATACEPT SUBQ INJECTION 125MG/ML [Suspect]
     Indication: RHEUMATOID ARTHRITIS
     Dosage: Last inj:Jun12
     Route: 058
  2. METHOTREXATE [Suspect]

REACTIONS (2)
  - Back disorder [Unknown]
  - Drug effect incomplete [Unknown]
